FAERS Safety Report 5965224-0 (Version None)
Quarter: 2008Q4

REPORT INFORMATION
  Report Type: 
  Country: None (occurrence: None)
  Receive Date: 20081119
  Receipt Date: 20081118
  Transmission Date: 20090506
  Serious: No
  Sender: FDA-Public Use
  Company Number: 2008-186431-NL

PATIENT
  Age: 29 Year
  Sex: Female

DRUGS (6)
  1. GANIRELIX ACETATE INJECTION [Suspect]
     Indication: BLOOD LUTEINISING HORMONE ABNORMAL
     Dosage: 0.25 MG SUBCUTANEOUS
     Route: 058
     Dates: start: 20071230, end: 20080101
  2. FOLLITROPIN BETA [Concomitant]
  3. CHORIONIC GONADTROPIN [Concomitant]
  4. PROGESTERONE [Concomitant]
  5. PETHIDINE HYDROCHLORIDE [Concomitant]
  6. DIAZEPAM [Concomitant]

REACTIONS (2)
  - DRUG EXPOSURE DURING PREGNANCY [None]
  - ECTOPIC PREGNANCY [None]
